FAERS Safety Report 7942981-5 (Version None)
Quarter: 2011Q4

REPORT INFORMATION
  Report Type: 
  Country: None (occurrence: None)
  Receive Date: 20111128
  Receipt Date: 20111117
  Transmission Date: 20120403
  Serious: Yes (Other)
  Sender: FDA-Public Use
  Company Number: US-UCBSA-046089

PATIENT
  Age: 29 Year
  Sex: Male
  Weight: 85.2 kg

DRUGS (3)
  1. LAMICTAL [Concomitant]
     Route: 048
     Dates: start: 20111114
  2. VIMPAT [Suspect]
     Indication: JUVENILE MYOCLONIC EPILEPSY
     Route: 048
     Dates: start: 20110901, end: 20110101
  3. LAMICTAL [Concomitant]
     Indication: CONVULSION
     Route: 048
     Dates: end: 20111113

REACTIONS (2)
  - CONVULSION [None]
  - NAUSEA [None]
